FAERS Safety Report 5842960-8 (Version None)
Quarter: 2008Q3

REPORT INFORMATION
  Report Type: 
  Country: None (occurrence: None)
  Receive Date: 20080811
  Receipt Date: 20080804
  Transmission Date: 20090109
  Serious: Yes (Death, Hospitalization, Other)
  Sender: FDA-Public Use
  Company Number: 2008SP014740

PATIENT
  Age: 73 Year
  Sex: Male

DRUGS (4)
  1. TEMODAR [Suspect]
     Indication: ANAPLASTIC ASTROCYTOMA
     Dosage: 145 MG; QD; PO
     Route: 048
  2. BACTRIM [Concomitant]
  3. DECADRON SRC [Concomitant]
  4. LASIX [Concomitant]

REACTIONS (1)
  - MYELODYSPLASTIC SYNDROME [None]
